FAERS Safety Report 10616487 (Version 1)
Quarter: 2014Q4

REPORT INFORMATION
  Report Type: Spontaneous
  Country: US (occurrence: None)
  Receive Date: 20141126
  Receipt Date: 20141126
  Transmission Date: 20150529
  Serious: Yes (Death)
  Sender: FDA-Public Use
  Company Number: None

PATIENT
  Age: 53 Year
  Sex: Male
  Weight: 90.72 kg

DRUGS (1)
  1. AMBIEN CR [Suspect]
     Active Substance: ZOLPIDEM TARTRATE
     Indication: SLEEP DISORDER
     Dosage: 1 PILL, AT BEDTIME, TAKEN BY MOUTH
     Route: 048
     Dates: start: 20110726, end: 20110727

REACTIONS (8)
  - Memory impairment [None]
  - Headache [None]
  - Abnormal behaviour [None]
  - Personality change [None]
  - Asphyxia [None]
  - Completed suicide [None]
  - Incoherent [None]
  - Psychotic disorder [None]

NARRATIVE: CASE EVENT DATE: 20100728
